FAERS Safety Report 7341841-0 (Version None)
Quarter: 2011Q1

REPORT INFORMATION
  Report Type: 
  Country: None (occurrence: None)
  Receive Date: 20110309
  Receipt Date: 20110224
  Transmission Date: 20110831
  Serious: Yes (Other)
  Sender: FDA-Public Use
  Company Number: US-ELI_LILLY_AND_COMPANY-US201102007252

PATIENT
  Age: 67 Year
  Sex: Female

DRUGS (8)
  1. ASPIRIN [Concomitant]
     Dosage: 81 MG, DAILY (1/D)
  2. FOSAMAX [Concomitant]
     Dosage: 70 MG, WEEKLY (1/W)
  3. CRESTOR [Concomitant]
     Dosage: 10 MG, DAILY (1/D)
  4. CYMBALTA [Suspect]
     Dosage: 30 MG, DAILY (1/D)
     Dates: end: 20110211
  5. MULTI-VITAMIN [Concomitant]
     Dosage: UNK, DAILY (1/D)
  6. FISH OIL [Concomitant]
     Dosage: 3 D/F, DAILY (1/D)
  7. CALCIUM [Concomitant]
     Dosage: 1200 MG, DAILY (1/D)
  8. CYMBALTA [Suspect]
     Indication: NEUROPATHY PERIPHERAL
     Dosage: 60 MG, DAILY (1/D)
     Dates: start: 20091201

REACTIONS (8)
  - HEADACHE [None]
  - OFF LABEL USE [None]
  - TINNITUS [None]
  - PARAESTHESIA [None]
  - INTENTIONAL DRUG MISUSE [None]
  - DRUG WITHDRAWAL SYNDROME [None]
  - DIZZINESS [None]
  - SURGERY [None]
